FAERS Safety Report 6475411-3 (Version None)
Quarter: 2009Q4

REPORT INFORMATION
  Report Type: 
  Country: None (occurrence: None)
  Receive Date: 20091204
  Receipt Date: 20091201
  Transmission Date: 20100525
  Serious: Yes (Other)
  Sender: FDA-Public Use
  Company Number: US-BRISTOL-MYERS SQUIBB COMPANY-14877955

PATIENT
  Age: 19 Month
  Sex: Female
  Weight: 10 kg

DRUGS (4)
  1. ATAZANAVIR [Suspect]
     Indication: HIV INFECTION
     Dosage: INTERRUPTED ON 27OCT09
     Route: 048
     Dates: start: 20080729
  2. RITONAVIR [Suspect]
     Indication: HIV INFECTION
     Dosage: INTERRUPTED ON 27OCT09
     Route: 048
     Dates: start: 20080729
  3. EPIVIR [Suspect]
     Dosage: 15MONTHS
     Route: 048
     Dates: start: 20080729
  4. ZIDOVUDINE [Suspect]
     Dosage: 15MONTHS
     Route: 048
     Dates: start: 20080729

REACTIONS (1)
  - BLOOD ALKALINE PHOSPHATASE INCREASED [None]
